FAERS Safety Report 16471054 (Version 1)
Quarter: 2019Q2

REPORT INFORMATION
  Report Type: Spontaneous
  Country: US (occurrence: US)
  Receive Date: 20190624
  Receipt Date: 20190624
  Transmission Date: 20190711
  Serious: Yes (Other)
  Sender: FDA-Public Use
  Company Number: US-HORIZON-PEN-0607-2019

PATIENT
  Age: 72 Year
  Sex: Female

DRUGS (3)
  1. ADVIL [Concomitant]
     Active Substance: IBUPROFEN
  2. PENNSAID [Suspect]
     Active Substance: DICLOFENAC SODIUM
     Indication: ARTHRALGIA
     Dosage: 2 PACKETS A DAY. TWICE A DAY
  3. CELEBREX [Concomitant]
     Active Substance: CELECOXIB

REACTIONS (6)
  - Inability to afford medication [Unknown]
  - Condition aggravated [Unknown]
  - Foot fracture [Unknown]
  - Arthralgia [Unknown]
  - Insurance issue [Unknown]
  - Expired product administered [Unknown]
